FAERS Safety Report 7606563-7 (Version None)
Quarter: 2011Q3

REPORT INFORMATION
  Report Type: 
  Country: None (occurrence: None)
  Receive Date: 20110713
  Receipt Date: 20110701
  Transmission Date: 20111222
  Serious: Yes (Other)
  Sender: FDA-Public Use
  Company Number: PHHY2011FR31948

PATIENT
  Sex: Male
  Weight: 67 kg

DRUGS (4)
  1. AFINITOR [Suspect]
     Indication: RENAL CANCER METASTATIC
     Dosage: 10 MG, QD
     Route: 048
     Dates: start: 20101210, end: 20101229
  2. AFINITOR [Suspect]
     Dosage: 5 MG, QD
     Route: 048
     Dates: start: 20110301
  3. COSOPT [Concomitant]
     Indication: OCULAR HYPERTENSION
  4. AFINITOR [Suspect]
     Dosage: 5 MG, QD
     Route: 048
     Dates: start: 20110202, end: 20110223

REACTIONS (15)
  - EYE PAIN [None]
  - RED BLOOD CELL SEDIMENTATION RATE DECREASED [None]
  - BLOOD CREATININE INCREASED [None]
  - DIABETES MELLITUS [None]
  - MONOCYTE COUNT DECREASED [None]
  - OCULAR DISCOMFORT [None]
  - WHITE BLOOD CELL COUNT DECREASED [None]
  - LYMPHOCYTE COUNT DECREASED [None]
  - NEUTROPENIA [None]
  - THROMBOCYTOPENIA [None]
  - IRIDOCYCLITIS [None]
  - OCULAR HYPERAEMIA [None]
  - RENAL FAILURE [None]
  - HYPERGLYCAEMIA [None]
  - BLOOD LACTATE DEHYDROGENASE DECREASED [None]
